FAERS Safety Report 5497962-0 (Version None)
Quarter: 2007Q4

REPORT INFORMATION
  Report Type: 
  Country: None (occurrence: None)
  Receive Date: 20071018
  Receipt Date: 20060905
  Transmission Date: 20080405
  Serious: Yes (Other)
  Sender: FDA-Public Use
  Company Number: 2006102939

PATIENT
  Sex: Female
  Weight: 92.9874 kg

DRUGS (6)
  1. NEURONTIN [Suspect]
     Indication: NEUROPATHY PERIPHERAL
  2. LYRICA [Suspect]
     Indication: NEUROPATHY PERIPHERAL
     Dosage: 225 MG (75 MG, 3 IN 1 D),
     Dates: start: 20060815
  3. LOTREL [Concomitant]
  4. HYZAAR [Concomitant]
  5. AMBIEN [Concomitant]
  6. ESTRADIOL [Concomitant]

REACTIONS (4)
  - DRUG INEFFECTIVE [None]
  - OEDEMA PERIPHERAL [None]
  - PARAESTHESIA [None]
  - VISION BLURRED [None]
